FAERS Safety Report 9437424 (Version 1)
Quarter: 2013Q3

REPORT INFORMATION
  Report Type: Spontaneous
  Country: IT (occurrence: IT)
  Receive Date: 20130802
  Receipt Date: 20130802
  Transmission Date: 20140515
  Serious: Yes (Hospitalization)
  Sender: FDA-Public Use
  Company Number: IT-ASTRAZENECA-2013SE57157

PATIENT
  Age: 15820 Day
  Sex: Female

DRUGS (3)
  1. SEROQUEL [Suspect]
     Indication: INTENTIONAL OVERDOSE
     Route: 048
     Dates: start: 20130706, end: 20130706
  2. FLUNOX [Suspect]
     Indication: INTENTIONAL OVERDOSE
     Route: 048
     Dates: start: 20130706, end: 20130706
  3. OKI [Concomitant]

REACTIONS (2)
  - Intentional overdose [Unknown]
  - Drug abuse [Unknown]
